FAERS Safety Report 5353066-9 (Version None)
Quarter: 2007Q2

REPORT INFORMATION
  Report Type: 
  Country: None (occurrence: None)
  Receive Date: 20070611
  Receipt Date: 20070529
  Transmission Date: 20071010
  Serious: Yes (Hospitalization)
  Sender: FDA-Public Use
  Company Number: DE-GENENTECH-242550

PATIENT
  Sex: Male
  Weight: 70 kg

DRUGS (5)
  1. BEVACIZUMAB [Suspect]
     Indication: RECTAL CANCER
     Dosage: 350 MG, UNK
     Route: 042
     Dates: start: 20070315
  2. FLUOROURACIL [Suspect]
     Indication: RECTAL CANCER
     Dosage: 3500 MG, UNK
     Route: 042
  3. IRINOTECAN HCL [Suspect]
     Indication: RECTAL CANCER
     Dosage: 140 MG, UNK
     Route: 042
  4. CALCIUM FOLINATE [Concomitant]
     Indication: DRUG USE FOR UNKNOWN INDICATION
  5. NOVAMINSULFON [Concomitant]
     Indication: DRUG USE FOR UNKNOWN INDICATION

REACTIONS (2)
  - ANAEMIA [None]
  - GASTROENTERITIS [None]
